FAERS Safety Report 20440338 (Version 1)
Quarter: 2022Q1

REPORT INFORMATION
  Report Type: Spontaneous
  Country: US (occurrence: None)
  Receive Date: 20220207
  Receipt Date: 20220207
  Transmission Date: 20220423
  Serious: No
  Sender: FDA-Public Use
  Company Number: None

PATIENT
  Sex: Male

DRUGS (1)
  1. COSENTYX [Suspect]
     Active Substance: SECUKINUMAB
     Indication: Psoriasis
     Dosage: 300MGEVERY 28 DAYS SC?
     Route: 058
     Dates: start: 20220204

REACTIONS (6)
  - Erythema [None]
  - Pruritus [None]
  - Skin burning sensation [None]
  - Joint stiffness [None]
  - Nail discolouration [None]
  - Condition aggravated [None]
